FAERS Safety Report 20443072 (Version 9)
Quarter: 2022Q3

REPORT INFORMATION
  Report Type: Other
  Country: GB (occurrence: GB)
  Receive Date: 20220208
  Receipt Date: 20220912
  Transmission Date: 20221027
  Serious: Yes (Life-Threatening, Hospitalization, Disabling, Other)
  Sender: FDA-Public Use
  Company Number: None

PATIENT
  Age: 31 Year
  Sex: Female
  Weight: 63.5 kg

DRUGS (188)
  1. DIAZEPAM [Interacting]
     Active Substance: DIAZEPAM
     Indication: Serotonin syndrome
     Dosage: 8 MILLIGRAM, 24 HOURS, TABLET ((5 MG QDS AND NOW ON 2-2-4 MG)
     Route: 048
  2. DIAZEPAM [Interacting]
     Active Substance: DIAZEPAM
     Indication: Muscle spasms
     Dosage: 20 MILLIGRAM, QD 5 MILLIGRAM, QID, 5 MG QID (5 MG QDS AND NOW ON 2-2-4 MG)
     Route: 048
  3. DIAZEPAM [Interacting]
     Active Substance: DIAZEPAM
     Indication: Depression
     Dosage: 80 MILLIGRAM, PER DAY (TABLET)
     Route: 065
  4. DIAZEPAM [Interacting]
     Active Substance: DIAZEPAM
     Indication: Analgesic therapy
     Dosage: 5 MILLIGRAM, TABLET
     Route: 048
  5. DIAZEPAM [Interacting]
     Active Substance: DIAZEPAM
     Dosage: 8 MILLIGRAM, TABLET (UNCOATED)
     Route: 048
  6. DIAZEPAM [Interacting]
     Active Substance: DIAZEPAM
     Dosage: UNK, TABLET (UNCOATED)
     Route: 048
  7. DIAZEPAM [Interacting]
     Active Substance: DIAZEPAM
     Dosage: UNK, QD ((5 MG QDS AND NOW ON 2-2-4 MG)
     Route: 048
  8. DIAZEPAM [Interacting]
     Active Substance: DIAZEPAM
     Dosage: 20 MILLIGRAM, PER DAY
     Route: 048
  9. DIAZEPAM [Interacting]
     Active Substance: DIAZEPAM
     Dosage: UNK; TABLET
     Route: 065
  10. DIAZEPAM [Interacting]
     Active Substance: DIAZEPAM
     Dosage: 8 MILLIGRAM, QD
     Route: 048
  11. DIAZEPAM [Interacting]
     Active Substance: DIAZEPAM
     Dosage: 8 MILLIGRAM PER DAY
     Route: 065
  12. DIAZEPAM [Interacting]
     Active Substance: DIAZEPAM
     Dosage: 5 MILLIGRAM, PER DAY
     Route: 048
  13. DIAZEPAM [Interacting]
     Active Substance: DIAZEPAM
     Dosage: 8 MILLIGRAM, QD, (TABLET) (5 MG QDS AND NOW ON 2-2-4 MG)
     Route: 048
  14. DIAZEPAM [Interacting]
     Active Substance: DIAZEPAM
     Dosage: 5 MILLIGRAM, QID (TABLET)
     Route: 048
  15. DIAZEPAM [Interacting]
     Active Substance: DIAZEPAM
     Dosage: 20 MILLIGRAM, QID
     Route: 065
  16. DIAZEPAM [Interacting]
     Active Substance: DIAZEPAM
     Dosage: UNK
     Route: 065
  17. DIAZEPAM [Interacting]
     Active Substance: DIAZEPAM
     Dosage: 5 MILLIGRAM, BID, 4/ DAY (TABLET UNCOATED)
     Route: 048
  18. OMEPRAZOLE [Interacting]
     Active Substance: OMEPRAZOLE
     Indication: Dyspepsia
     Dosage: 20 MG, QD, 24 HOUR, CUMULATIVE DOSE (61319.17 MG)
     Route: 065
  19. OMEPRAZOLE [Interacting]
     Active Substance: OMEPRAZOLE
     Dosage: 20 MILLIGRAM, QD, CUMULATIVE DOSE (61319.17 MG)
     Route: 048
  20. OMEPRAZOLE [Interacting]
     Active Substance: OMEPRAZOLE
     Dosage: 20 MILLIGRAM, QD,  CUMULATIVE DOSE (10179.167MG)
     Route: 065
  21. OMEPRAZOLE [Interacting]
     Active Substance: OMEPRAZOLE
     Dosage: 20 MILLIGRAM, QD (CAPSULE) CUMULATIVE DOSE (61319.17 MG)
     Route: 065
  22. OMEPRAZOLE [Interacting]
     Active Substance: OMEPRAZOLE
     Dosage: 20 MILLIGRAM, (CAPSULE)
     Route: 048
  23. OMEPRAZOLE [Interacting]
     Active Substance: OMEPRAZOLE
     Dosage: 20 MILLIGRAM, 1/PER DAY (CAPSULE) CUMULATIVE DOSE (61319.17 MG)
     Route: 065
  24. TRAMADOL [Interacting]
     Active Substance: TRAMADOL
     Indication: Back pain
     Dosage: 5 MILLIGRAM, QD (1/DAY)
     Route: 048
     Dates: start: 1995, end: 1996
  25. TRAMADOL [Interacting]
     Active Substance: TRAMADOL
     Indication: Neck pain
     Dosage: 50-100 MILLIGRAMS QID
     Route: 048
  26. TRAMADOL [Interacting]
     Active Substance: TRAMADOL
     Indication: Analgesic therapy
     Dosage: 4 (CYCLICAL),50-100 MILLIGRAMS, QD
     Route: 048
  27. TRAMADOL [Interacting]
     Active Substance: TRAMADOL
     Indication: Oculogyric crisis
     Dosage: 5 MILLIGRAM PER DAY (1/DAY)
     Route: 044
     Dates: start: 1995, end: 1996
  28. TRAMADOL [Interacting]
     Active Substance: TRAMADOL
     Indication: Muscle spasms
     Dosage: 8 MILLIGRAM, PER DAY
     Route: 048
  29. TRAMADOL [Interacting]
     Active Substance: TRAMADOL
     Dosage: UNK, 4 PER DAY
     Route: 065
  30. TRAMADOL [Interacting]
     Active Substance: TRAMADOL
     Dosage: 20 MILLIGRAM PER DAY (5 MG , 4 TIMES DAY)
     Route: 065
  31. TRAMADOL [Interacting]
     Active Substance: TRAMADOL
     Dosage: UNK, 2008/2009, DRUG START/DRUG WITHDRAWN
     Route: 048
     Dates: start: 20080722
  32. TRAMADOL [Interacting]
     Active Substance: TRAMADOL
     Dosage: UNK
     Route: 065
  33. TRAMADOL [Interacting]
     Active Substance: TRAMADOL
     Dosage: UNK
     Route: 048
  34. TRAMADOL [Interacting]
     Active Substance: TRAMADOL
     Dosage: 4 DOSAGE FORM, QD
     Route: 065
  35. TRAMADOL [Interacting]
     Active Substance: TRAMADOL
     Dosage: 1 DOSAGE FORM, (1 DOSAGE FORM, QD (5 MG QDS AND NOW ON 2-2-4 MG))
     Route: 065
  36. TRAMADOL [Interacting]
     Active Substance: TRAMADOL
     Dosage: UNK, 4 CYCLICAL QD (50-100 MG)
     Route: 048
  37. TRAMADOL [Interacting]
     Active Substance: TRAMADOL
     Dosage: UNK; PER DAY DISCONTINUED AFTER 4 OR 5 DAYS
     Route: 048
  38. TRAMADOL [Interacting]
     Active Substance: TRAMADOL
     Dosage: 5 MILLIGRAM, UNK
     Route: 065
  39. TRAMADOL [Interacting]
     Active Substance: TRAMADOL
     Dosage: UNK, (4 OT, QD)
     Route: 048
  40. TRAMADOL [Interacting]
     Active Substance: TRAMADOL
     Dosage: 4 DOSAGE FORM, UNKNOWN
     Route: 048
  41. TRAMADOL [Interacting]
     Active Substance: TRAMADOL
     Dosage: UNK, 2008/2009, QD (4 CYCLICAL (50-100MG QDS FOR ONE WEEK ONLY))
     Route: 048
     Dates: start: 20080722
  42. TRAMADOL [Interacting]
     Active Substance: TRAMADOL
     Dosage: UNK
     Route: 065
  43. TRAMADOL [Interacting]
     Active Substance: TRAMADOL
     Dosage: UNK
     Route: 048
  44. TRAMADOL [Interacting]
     Active Substance: TRAMADOL
     Dosage: 8 MILLIGRAM PER DAY
     Route: 048
  45. TRAMADOL [Interacting]
     Active Substance: TRAMADOL
     Dosage: 4 MILLIGRAM, QD (50-100MG,QD)
     Route: 048
  46. TRAMADOL [Interacting]
     Active Substance: TRAMADOL
     Dosage: 100 MILLIGRAM, QD (1/DAY)
     Route: 048
  47. TRAMADOL [Interacting]
     Active Substance: TRAMADOL
     Dosage: 100 MILLIGRAM, BID (4/DAY)
     Route: 065
  48. TRAMADOL [Interacting]
     Active Substance: TRAMADOL
     Dosage: 8 MILLIGRAM, QD, (1/DAY)
     Route: 065
  49. TRAMADOL [Interacting]
     Active Substance: TRAMADOL
     Dosage: 5 MILLIGRAM PER DAY (1/DAY)
     Route: 065
     Dates: start: 1995, end: 1996
  50. TRAMADOL [Interacting]
     Active Substance: TRAMADOL
     Dosage: 100 MILLIGRAM, BID (4/DAY)
     Route: 065
  51. TRAMADOL [Interacting]
     Active Substance: TRAMADOL
     Dosage: UNK, CYCLICAL, (1 (1/DAY)) 4 CYCLICAL
     Route: 065
  52. PROCYCLIDINE [Interacting]
     Active Substance: PROCYCLIDINE
     Indication: Extrapyramidal disorder
     Dosage: 5 MILLIGRAM, Q24H
     Route: 048
  53. PROCYCLIDINE [Interacting]
     Active Substance: PROCYCLIDINE
     Indication: Oculogyric crisis
     Dosage: UNK
     Route: 065
  54. PROCYCLIDINE [Interacting]
     Active Substance: PROCYCLIDINE
     Indication: Psychotic symptom
     Dosage: 20 MILLIGRAM, UNK
     Route: 048
  55. PROCYCLIDINE [Interacting]
     Active Substance: PROCYCLIDINE
     Dosage: 15 MILLIGRAM, QD, 24 HOURS (PER DAY)
     Route: 048
  56. PROCYCLIDINE [Interacting]
     Active Substance: PROCYCLIDINE
     Dosage: 5 MILLIGRAM, QD
     Route: 048
  57. PROCYCLIDINE [Interacting]
     Active Substance: PROCYCLIDINE
     Dosage: 5 MILLIGRAM, TID (15 MG, PER DAY)
     Route: 048
  58. PROCYCLIDINE [Interacting]
     Active Substance: PROCYCLIDINE
     Dosage: 20 MILLIGRAM, QD (1/DAY)
     Route: 048
  59. PROCYCLIDINE [Interacting]
     Active Substance: PROCYCLIDINE
     Dosage: 5 MILLIGRAM, QD
     Route: 048
     Dates: start: 1995, end: 1995
  60. PROCYCLIDINE [Interacting]
     Active Substance: PROCYCLIDINE
     Dosage: 20 MILLIGRAM, PER DAY
     Route: 065
  61. PROCYCLIDINE [Interacting]
     Active Substance: PROCYCLIDINE
     Dosage: 5 MILLIGRAM, PER DAY
     Route: 048
     Dates: start: 1995, end: 1996
  62. PROCYCLIDINE [Interacting]
     Active Substance: PROCYCLIDINE
     Dosage: 20 MILLIGRAM, UNK
     Route: 048
  63. PROCYCLIDINE [Interacting]
     Active Substance: PROCYCLIDINE
     Dosage: 5 MILLIGRAM, TID
     Route: 065
  64. PROCYCLIDINE [Interacting]
     Active Substance: PROCYCLIDINE
     Dosage: 15 MILLIGRAM, TID
     Route: 048
  65. PROCYCLIDINE [Interacting]
     Active Substance: PROCYCLIDINE
     Dosage: 5 MILLIGRAM, QD
     Route: 048
     Dates: start: 1995, end: 1996
  66. PROCYCLIDINE [Interacting]
     Active Substance: PROCYCLIDINE
     Dosage: UNK
     Route: 065
  67. PROCYCLIDINE [Interacting]
     Active Substance: PROCYCLIDINE
     Dosage: 15 MILLIGRAM, QD (5MG TID)
     Route: 048
  68. PROCYCLIDINE [Interacting]
     Active Substance: PROCYCLIDINE
     Dosage: 20 MILLIGRAM, QD (IN 1ST TRIMESTER)
     Route: 065
  69. PROCYCLIDINE [Interacting]
     Active Substance: PROCYCLIDINE
     Dosage: UNK
     Route: 065
     Dates: start: 1995, end: 19960615
  70. PROCYCLIDINE [Interacting]
     Active Substance: PROCYCLIDINE
     Dosage: 5 MILLIGRAM, QD (1/DAY)
     Route: 048
     Dates: start: 1995, end: 1996
  71. DOMPERIDONE [Interacting]
     Active Substance: DOMPERIDONE
     Indication: Product used for unknown indication
     Dosage: UNK, TABLET (UNCOATED)
     Route: 048
  72. DOMPERIDONE [Interacting]
     Active Substance: DOMPERIDONE
     Dosage: UNK, TABLET
     Route: 048
  73. DOMPERIDONE [Interacting]
     Active Substance: DOMPERIDONE
     Dosage: UNK, EFFERVESCENT TABLET
     Route: 048
  74. DOMPERIDONE [Interacting]
     Active Substance: DOMPERIDONE
     Dosage: UNK
     Route: 065
  75. DOMPERIDONE [Interacting]
     Active Substance: DOMPERIDONE
     Dosage: UNK, TABLET
     Route: 048
  76. DOMPERIDONE [Interacting]
     Active Substance: DOMPERIDONE
     Dosage: UNK (TABLET, UNCOATED)
     Route: 048
  77. DOMPERIDONE [Interacting]
     Active Substance: DOMPERIDONE
     Dosage: UNK
     Route: 065
  78. CLONAZEPAM [Interacting]
     Active Substance: CLONAZEPAM
     Indication: Sedation
     Dosage: UNK, UNSURE (THERAPY END FLAG: DRUG NO LONGER ADMINISTERED)(TABLET)
     Route: 048
  79. CLONAZEPAM [Interacting]
     Active Substance: CLONAZEPAM
     Dosage: UNK (UNSURE)(TABLET)
     Route: 048
  80. CLONAZEPAM [Interacting]
     Active Substance: CLONAZEPAM
     Dosage: UNK, (UNSURE)
     Route: 048
  81. CLONAZEPAM [Interacting]
     Active Substance: CLONAZEPAM
     Dosage: UNK, (UNSURE)
     Route: 065
  82. AMITRIPTYLINE [Interacting]
     Active Substance: AMITRIPTYLINE
     Indication: Muscle spasms
     Dosage: 25 MG, QD, AT NIGHT (TABLET)
     Route: 065
  83. AMITRIPTYLINE [Interacting]
     Active Substance: AMITRIPTYLINE
     Indication: Serotonin syndrome
     Dosage: UNK, TABLET
     Route: 065
  84. AMITRIPTYLINE [Interacting]
     Active Substance: AMITRIPTYLINE
     Indication: Neuralgia
     Dosage: UNK, QD
     Route: 065
  85. AMITRIPTYLINE [Interacting]
     Active Substance: AMITRIPTYLINE
     Indication: Drug withdrawal syndrome
     Dosage: UNK, PER DAY
     Route: 065
  86. AMITRIPTYLINE [Interacting]
     Active Substance: AMITRIPTYLINE
     Dosage: UNK, AT NIGHT, PER DAY
     Route: 065
  87. AMITRIPTYLINE [Interacting]
     Active Substance: AMITRIPTYLINE
     Dosage: UNK, QD
     Route: 065
  88. AMITRIPTYLINE [Interacting]
     Active Substance: AMITRIPTYLINE
     Dosage: UNK, AT NIGHT , ONE
     Route: 065
  89. AMITRIPTYLINE [Interacting]
     Active Substance: AMITRIPTYLINE
     Dosage: 20 MILLIGRAM, QD, CAPSULE
     Route: 065
  90. AMITRIPTYLINE [Interacting]
     Active Substance: AMITRIPTYLINE
     Dosage: UNK; TABLET (UNCOATED)
     Route: 048
  91. AMITRIPTYLINE [Interacting]
     Active Substance: AMITRIPTYLINE
     Dosage: UNK, TABLET (UNCOATED)
     Route: 048
  92. AMITRIPTYLINE [Interacting]
     Active Substance: AMITRIPTYLINE
     Dosage: UNK
     Route: 065
  93. AMITRIPTYLINE [Interacting]
     Active Substance: AMITRIPTYLINE
     Dosage: UNK
     Route: 065
  94. AMITRIPTYLINE [Interacting]
     Active Substance: AMITRIPTYLINE
     Dosage: UNK
     Route: 065
  95. AMITRIPTYLINE [Interacting]
     Active Substance: AMITRIPTYLINE
     Dosage: UNK, TABLET (UNCOATED, ORAL)
     Route: 048
  96. AMITRIPTYLINE [Interacting]
     Active Substance: AMITRIPTYLINE
     Dosage: 25 MG, PER DAY, AT NIGHT (TABLET, UNCOATED)
     Route: 048
  97. AMITRIPTYLINE [Interacting]
     Active Substance: AMITRIPTYLINE
     Dosage: UNK, (TABLET UNCOATED)
     Route: 048
  98. LORAZEPAM [Interacting]
     Active Substance: LORAZEPAM
     Indication: Sedation
     Dosage: 4 MILLIGRAM, QD (1 MILLIGRAM QID)
     Route: 048
  99. LORAZEPAM [Interacting]
     Active Substance: LORAZEPAM
     Indication: Muscle spasms
     Dosage: 4 MILLIGRAM, QID (1 MILLIGRAM QD)
     Route: 048
  100. LORAZEPAM [Interacting]
     Active Substance: LORAZEPAM
     Dosage: 1 MILLIGRAM, UNKNOWN
     Route: 048
  101. LORAZEPAM [Interacting]
     Active Substance: LORAZEPAM
     Dosage: 1 MILLIGRAM, UNKNOWN
     Route: 048
  102. LORAZEPAM [Interacting]
     Active Substance: LORAZEPAM
     Dosage: UNK, QD TABLET
     Route: 048
  103. LORAZEPAM [Interacting]
     Active Substance: LORAZEPAM
     Dosage: 16 MILLIGRAM, QD
     Route: 048
  104. LORAZEPAM [Interacting]
     Active Substance: LORAZEPAM
     Dosage: 1 MILLIGRAM, UNKNOWN
     Route: 048
  105. LORAZEPAM [Interacting]
     Active Substance: LORAZEPAM
     Dosage: 1 MILLIGRAM; UNK
     Route: 048
  106. LORAZEPAM [Interacting]
     Active Substance: LORAZEPAM
     Dosage: 4 MILLIGRAM; UNK (2 DOSES); TABLET
     Route: 048
  107. LORAZEPAM [Interacting]
     Active Substance: LORAZEPAM
     Dosage: 1 MILLIGRAM; UNK TABLET
     Route: 048
  108. LORAZEPAM [Interacting]
     Active Substance: LORAZEPAM
     Dosage: 4 MILLIGRAM; UNK TABLET
     Route: 048
  109. LORAZEPAM [Interacting]
     Active Substance: LORAZEPAM
     Dosage: 4 MILLIGRAM, QID; TABLET
     Route: 048
  110. LORAZEPAM [Interacting]
     Active Substance: LORAZEPAM
     Dosage: 1 MILLIGRAM, QID; TABLET
     Route: 048
  111. LORAZEPAM [Interacting]
     Active Substance: LORAZEPAM
     Dosage: 4 MILLIGRAM, QD; TABLET
     Route: 048
  112. LORAZEPAM [Interacting]
     Active Substance: LORAZEPAM
     Dosage: 4 MILLIGRAM, ONCE PER DAY
     Route: 048
  113. LORAZEPAM [Interacting]
     Active Substance: LORAZEPAM
     Dosage: UNK, QD (TABLET)
     Route: 048
  114. LORAZEPAM [Interacting]
     Active Substance: LORAZEPAM
     Dosage: 4 MILLIGRAM (TABLET)
     Route: 048
  115. LORAZEPAM [Interacting]
     Active Substance: LORAZEPAM
     Dosage: 16 MILLIGRAM, QD (4MG QID)
     Route: 048
  116. LORAZEPAM [Interacting]
     Active Substance: LORAZEPAM
     Dosage: 4 MILLIGRAM, QD
     Route: 048
  117. LORAZEPAM [Interacting]
     Active Substance: LORAZEPAM
     Dosage: 4 MILLIGRAM, QD (1 MILLIGRAM QID)
     Route: 065
  118. LORAZEPAM [Interacting]
     Active Substance: LORAZEPAM
     Dosage: 4 MILLIGRAM, QD (1 MILLIGRAM QID)
     Route: 048
  119. LORAZEPAM [Interacting]
     Active Substance: LORAZEPAM
     Dosage: 4 MILLIGRAM, BID (4/DAY) (TABLET UNCOATED)
     Route: 048
  120. LORAZEPAM [Interacting]
     Active Substance: LORAZEPAM
     Dosage: 1 MILLIGRAM, BID (4/DAY) (TABLET UNCOATED)
     Route: 048
  121. LORAZEPAM [Interacting]
     Active Substance: LORAZEPAM
     Dosage: 4 MILLIGRAM (TABLET, UNCOATED)
     Route: 048
  122. LORAZEPAM [Interacting]
     Active Substance: LORAZEPAM
     Dosage: 4 MILLIGRAM, QD (TABLET, UNCOATED)
     Route: 048
  123. LORAZEPAM [Interacting]
     Active Substance: LORAZEPAM
     Dosage: 1 MILLIGRAM, QD (1/DAY) (TABLET UNCOATED)
     Route: 048
  124. LORAZEPAM [Interacting]
     Active Substance: LORAZEPAM
     Dosage: 4 MILLIGRAM (TABLET, UNCOATED)
     Route: 048
  125. MIRTAZAPINE [Interacting]
     Active Substance: MIRTAZAPINE
     Indication: Depression
     Dosage: 30 MILLIGRAM, QD (PER DAY)
     Route: 048
  126. MIRTAZAPINE [Interacting]
     Active Substance: MIRTAZAPINE
     Indication: Psychotic disorder
     Dosage: 30 MILLIGRAM, QD (UNSURE)
     Route: 048
  127. MIRTAZAPINE [Interacting]
     Active Substance: MIRTAZAPINE
     Dosage: 30 MILLIGRAM IN THE DAY AND 15MG AT NIGHT
     Route: 065
  128. MIRTAZAPINE [Interacting]
     Active Substance: MIRTAZAPINE
     Dosage: 30 MILLIGRAM IN THE DAY AND 15MG AT NIGHT
     Route: 048
  129. MIRTAZAPINE [Interacting]
     Active Substance: MIRTAZAPINE
     Dosage: UNK
     Route: 065
  130. MIRTAZAPINE [Interacting]
     Active Substance: MIRTAZAPINE
     Dosage: 15 MILLIGRAM, 30MG IN THE DAY AND 15MG AT NIGHT, CUMULATIVE DOSE (44640.0 MG)
     Route: 065
  131. MIRTAZAPINE [Interacting]
     Active Substance: MIRTAZAPINE
     Dosage: 15 MILLIGRAM, QD (30MG IN THE DAY AND 15MG AT NIGHT) CUMULATIVE DOSE (1410 MG)(TABLET)
     Route: 065
  132. MIRTAZAPINE [Interacting]
     Active Substance: MIRTAZAPINE
     Dosage: UNK, (TABLET)
     Route: 048
  133. MIRTAZAPINE [Interacting]
     Active Substance: MIRTAZAPINE
     Dosage: 30 MILLIGRAM, UNK
     Route: 048
  134. MIRTAZAPINE [Interacting]
     Active Substance: MIRTAZAPINE
     Dosage: 1 UNKNOWN (30MG IN THE DAY AND 15MG AT NIGHT )
     Route: 065
  135. MIRTAZAPINE [Interacting]
     Active Substance: MIRTAZAPINE
     Dosage: 15 MILLIGRAM, BID
     Route: 048
  136. MIRTAZAPINE [Interacting]
     Active Substance: MIRTAZAPINE
     Dosage: 30 MILLIGRAM, QD (1/PER DAY) (TABLET UNCOATED)
     Route: 048
  137. MIRTAZAPINE [Interacting]
     Active Substance: MIRTAZAPINE
     Dosage: 30 MILLIGRAM, QD (1/PER DAY) (TABLET UNCOATED)
     Route: 065
  138. MIRTAZAPINE [Interacting]
     Active Substance: MIRTAZAPINE
     Dosage: 30 MILLIGRAM, QD (1/PER DAY) (TABLET UNCOATED)
     Route: 065
  139. QUETIAPINE [Interacting]
     Active Substance: QUETIAPINE
     Indication: Psychotic disorder
     Dosage: 300 MILLIGRAM, UNK (FILM COATED TABLET)
     Route: 048
  140. QUETIAPINE [Interacting]
     Active Substance: QUETIAPINE
     Indication: Stress
     Dosage: UNK, TABLET
     Route: 048
  141. QUETIAPINE [Interacting]
     Active Substance: QUETIAPINE
     Dosage: UNK
     Route: 065
  142. QUETIAPINE [Interacting]
     Active Substance: QUETIAPINE
     Dosage: UNK
     Route: 048
  143. QUETIAPINE [Interacting]
     Active Substance: QUETIAPINE
     Dosage: 300 MILLIGRAM (FILM-COATED TABLET )
     Route: 048
  144. QUETIAPINE [Interacting]
     Active Substance: QUETIAPINE
     Dosage: UNK, (TABLET UNCOATED)
     Route: 048
  145. QUETIAPINE [Interacting]
     Active Substance: QUETIAPINE
     Dosage: 300 MILLIGRAM, (UNCOATED TABLET)
     Route: 048
  146. PAROXETINE HYDROCHLORIDE [Interacting]
     Active Substance: PAROXETINE HYDROCHLORIDE
     Indication: Depression
     Dosage: 20 MILLIGRAM, THREE TIMES PER DAY (INTERRUPTED)
     Route: 048
  147. PAROXETINE HYDROCHLORIDE [Interacting]
     Active Substance: PAROXETINE HYDROCHLORIDE
     Dosage: 20 MG,THREE TIMES PER DAY (60 MG DAILY) (TABLET UNCOATED)
     Route: 048
     Dates: start: 19990801, end: 201105
  148. PAROXETINE HYDROCHLORIDE [Interacting]
     Active Substance: PAROXETINE HYDROCHLORIDE
     Dosage: 40 MILLIGRAM PER DAY (20MG, 2/DAY) (TABLET UNCOATED)
     Route: 048
  149. PAROXETINE HYDROCHLORIDE [Interacting]
     Active Substance: PAROXETINE HYDROCHLORIDE
     Dosage: UNK, TABLET
     Route: 048
  150. PAROXETINE HYDROCHLORIDE [Interacting]
     Active Substance: PAROXETINE HYDROCHLORIDE
     Dosage: UNK
     Route: 048
  151. PAROXETINE HYDROCHLORIDE [Interacting]
     Active Substance: PAROXETINE HYDROCHLORIDE
     Dosage: 180 MILLIGRAM PER DAY
     Route: 048
  152. PAROXETINE HYDROCHLORIDE [Interacting]
     Active Substance: PAROXETINE HYDROCHLORIDE
     Dosage: 60 MILLIGRAM , PER DAY INTERRUPTED
     Route: 048
  153. PAROXETINE HYDROCHLORIDE [Interacting]
     Active Substance: PAROXETINE HYDROCHLORIDE
     Dosage: 1 DOSAGE FORM, QD (1/DAY) (TABLET UNCOATED)
     Route: 048
     Dates: start: 200812, end: 20101210
  154. PAROXETINE HYDROCHLORIDE [Interacting]
     Active Substance: PAROXETINE HYDROCHLORIDE
     Dosage: 20 MILLIGRAM, BID
     Route: 048
  155. PAROXETINE HYDROCHLORIDE [Interacting]
     Active Substance: PAROXETINE HYDROCHLORIDE
     Dosage: 40 MILLIGRAM; PER DAY (INTERRUPTED)
     Route: 048
  156. PAROXETINE HYDROCHLORIDE [Interacting]
     Active Substance: PAROXETINE HYDROCHLORIDE
     Dosage: UNK, QD (TABLET)
     Route: 048
  157. PAROXETINE HYDROCHLORIDE [Interacting]
     Active Substance: PAROXETINE HYDROCHLORIDE
     Dosage: 1 UNK, PER DAY (INTERUPTED)
     Route: 048
  158. PAROXETINE HYDROCHLORIDE [Interacting]
     Active Substance: PAROXETINE HYDROCHLORIDE
     Dosage: 60 MILLIGRAM , PER DAY INTERRUPTED (TABLET UNCOATED)
     Route: 048
     Dates: start: 1997, end: 201105
  159. PAROXETINE HYDROCHLORIDE [Interacting]
     Active Substance: PAROXETINE HYDROCHLORIDE
     Dosage: 60 MILLIGRAM, QD (20MG, THREE TIMES PER DAY) TABLET
     Route: 048
     Dates: start: 1997, end: 201105
  160. PAROXETINE HYDROCHLORIDE [Interacting]
     Active Substance: PAROXETINE HYDROCHLORIDE
     Dosage: 180 MILLIGRAM, TID (60MG TID) (TABLET)
     Route: 048
  161. PAROXETINE HYDROCHLORIDE [Interacting]
     Active Substance: PAROXETINE HYDROCHLORIDE
     Dosage: 40 MILLIGRAM, QD
     Route: 048
  162. PAROXETINE HYDROCHLORIDE [Interacting]
     Active Substance: PAROXETINE HYDROCHLORIDE
     Dosage: 60 MILLIGRAM, PER DAY  (TABLET UNCOATED)
     Route: 048
     Dates: start: 19990801, end: 201105
  163. CODEINE [Interacting]
     Active Substance: CODEINE
     Indication: Analgesic therapy
     Dosage: UNK
     Route: 048
  164. CODEINE [Interacting]
     Active Substance: CODEINE
     Indication: Serotonin syndrome
     Dosage: UNK
     Route: 048
  165. CODEINE [Interacting]
     Active Substance: CODEINE
     Dosage: UNK, EVERY 24 HOURS, UNSURE,
     Route: 048
  166. CODEINE [Interacting]
     Active Substance: CODEINE
     Dosage: UNK, 15-30 MG
     Route: 048
  167. CODEINE [Interacting]
     Active Substance: CODEINE
     Dosage: UNK, (24 - EVERY HOUR)
     Route: 048
  168. CODEINE [Interacting]
     Active Substance: CODEINE
     Dosage: UNK
     Route: 048
  169. CODEINE [Interacting]
     Active Substance: CODEINE
     Dosage: UNK, QD
     Route: 048
  170. CODEINE [Interacting]
     Active Substance: CODEINE
     Dosage: UNK, UNK (EVERY 24 HOURS)
     Route: 048
  171. CODEINE [Interacting]
     Active Substance: CODEINE
     Dosage: UNK
     Route: 048
     Dates: start: 2002, end: 2002
  172. CODEINE [Interacting]
     Active Substance: CODEINE
     Dosage: UNK
     Route: 048
     Dates: start: 2002, end: 2002
  173. CODEINE [Interacting]
     Active Substance: CODEINE
     Dosage: UNK
     Route: 048
     Dates: start: 2008, end: 2008
  174. CODEINE [Interacting]
     Active Substance: CODEINE
     Dosage: UNK, UNSURE, 24 - EVERY HOUR. UNK UNK, QD (DOSAGE FORM : UNSPECIFIED, 15-30 MG )
     Route: 048
  175. PAROXETINE [Interacting]
     Active Substance: PAROXETINE
     Indication: Depression
     Dosage: 40 MILLIGRAM, QD (TABLET)
     Route: 048
     Dates: start: 19990801, end: 20110706
  176. PAROXETINE [Interacting]
     Active Substance: PAROXETINE
     Indication: Post-traumatic stress disorder
     Dosage: 40 MILLIGRAM, UNK CUMULATIVE DOSE TO FIRST REACTION: 166841.7 MG
     Route: 048
  177. PAROXETINE [Interacting]
     Active Substance: PAROXETINE
     Dosage: 60 MILLIGRAM PER DAY, (20 MG THREE TIMES A DAY
     Route: 048
  178. PAROXETINE [Interacting]
     Active Substance: PAROXETINE
     Dosage: UNK (TABLET)
     Route: 048
     Dates: start: 1996
  179. PAROXETINE [Interacting]
     Active Substance: PAROXETINE
     Dosage: UNK, TABLET
     Route: 065
  180. PAROXETINE [Interacting]
     Active Substance: PAROXETINE
     Dosage: 20 MILLIGRAM, TID, CUMULATIVE DOSE: (74942.5 MG) (60 MG PER DAY)
     Route: 048
  181. PAROXETINE [Interacting]
     Active Substance: PAROXETINE
     Dosage: 40 MILLIGRAM, QD, (FILM COATED TABLET), QD
     Route: 048
  182. PAROXETINE [Interacting]
     Active Substance: PAROXETINE
     Dosage: UNK, (FILM COATED TABLET)
     Route: 048
  183. PAROXETINE [Interacting]
     Active Substance: PAROXETINE
     Dosage: 20 MILLIGRAM, TID (40 MG)
     Route: 048
  184. PAROXETINE [Interacting]
     Active Substance: PAROXETINE
     Dosage: 60 MILLIGRAM PER DAY, (20 MG THREE TIMES A DAY) (TABLET)
     Route: 048
     Dates: start: 19990801, end: 201105
  185. PAROXETINE [Interacting]
     Active Substance: PAROXETINE
     Dosage: 60 MILLIGRAM PER DAY, (20 MG THREE TIMES A DAY) (TABLET)
     Route: 048
     Dates: start: 1997, end: 201105
  186. PAROXETINE [Interacting]
     Active Substance: PAROXETINE
     Dosage: 40 MILLIGRAM, QD (TABLET)
     Route: 048
  187. PHOSPHORUS [Interacting]
     Active Substance: PHOSPHORUS
     Indication: Product used for unknown indication
     Dosage: UNK
     Route: 065
  188. PHOSPHORUS [Interacting]
     Active Substance: PHOSPHORUS
     Dosage: UNK
     Route: 065

REACTIONS (96)
  - Neuroleptic malignant syndrome [Unknown]
  - Nightmare [Unknown]
  - Swollen tongue [Unknown]
  - Aphasia [Not Recovered/Not Resolved]
  - Suicidal ideation [Not Recovered/Not Resolved]
  - Dystonia [Unknown]
  - Feeling of body temperature change [Unknown]
  - Skin discolouration [Not Recovered/Not Resolved]
  - Premature labour [Not Recovered/Not Resolved]
  - Paraesthesia [Unknown]
  - Contusion [Not Recovered/Not Resolved]
  - Paralysis [Unknown]
  - Hypoaesthesia oral [Not Recovered/Not Resolved]
  - Pallor [Unknown]
  - Muscle disorder [Unknown]
  - Muscle spasms [Not Recovered/Not Resolved]
  - Arthralgia [Unknown]
  - Serotonin syndrome [Not Recovered/Not Resolved]
  - Musculoskeletal stiffness [Not Recovered/Not Resolved]
  - Heart rate increased [Unknown]
  - Pyrexia [Unknown]
  - Balance disorder [Unknown]
  - Gait disturbance [Unknown]
  - Hyperhidrosis [Unknown]
  - Cyanosis [Unknown]
  - Eye pain [Unknown]
  - Delirium [Unknown]
  - Depression [Unknown]
  - Mood swings [Unknown]
  - Dissociation [Not Recovered/Not Resolved]
  - Feeling of despair [Unknown]
  - Emotional disorder [Unknown]
  - Derealisation [Not Recovered/Not Resolved]
  - Dyspnoea [Unknown]
  - Swelling face [Unknown]
  - Incontinence [Not Recovered/Not Resolved]
  - Sensory loss [Unknown]
  - Mania [Unknown]
  - Hypoaesthesia [Not Recovered/Not Resolved]
  - H1N1 influenza [Unknown]
  - Asthenia [Unknown]
  - Tinnitus [Unknown]
  - Hyperhidrosis [Not Recovered/Not Resolved]
  - Decreased appetite [Unknown]
  - Blood sodium decreased [Unknown]
  - Drooling [Unknown]
  - Gastric pH decreased [Unknown]
  - Restless legs syndrome [Not Recovered/Not Resolved]
  - Feeling jittery [Unknown]
  - Parosmia [Unknown]
  - Menstrual disorder [Unknown]
  - Fatigue [Not Recovered/Not Resolved]
  - Speech disorder [Not Recovered/Not Resolved]
  - Pruritus [Unknown]
  - Headache [Unknown]
  - Diarrhoea [Unknown]
  - Dissociation [Not Recovered/Not Resolved]
  - Contusion [Not Recovered/Not Resolved]
  - Depersonalisation/derealisation disorder [Not Recovered/Not Resolved]
  - Sleep disorder [Not Recovered/Not Resolved]
  - Restlessness [Not Recovered/Not Resolved]
  - Drug interaction [Unknown]
  - Mydriasis [Unknown]
  - Urinary retention [Unknown]
  - Anxiety [Unknown]
  - Agitation [Unknown]
  - Disturbance in attention [Unknown]
  - Tachycardia [Unknown]
  - Contusion [Not Recovered/Not Resolved]
  - Seizure [Not Recovered/Not Resolved]
  - Confusional state [Not Recovered/Not Resolved]
  - Dizziness [Unknown]
  - Visual impairment [Unknown]
  - Suicidal ideation [Not Recovered/Not Resolved]
  - Cogwheel rigidity [Unknown]
  - Muscle rigidity [Unknown]
  - Dizziness [Unknown]
  - Tremor [Not Recovered/Not Resolved]
  - Disorientation [Not Recovered/Not Resolved]
  - Vision blurred [Unknown]
  - Dyskinesia [Unknown]
  - Hallucinations, mixed [Unknown]
  - Drug withdrawal syndrome [Not Recovered/Not Resolved]
  - Psychotic disorder [Recovered/Resolved]
  - Schizophrenia [Unknown]
  - Vomiting [Unknown]
  - Illness [Unknown]
  - Somnolence [Not Recovered/Not Resolved]
  - Maternal exposure during pregnancy [Unknown]
  - Therapeutic product ineffective [Unknown]
  - Drug ineffective [Unknown]
  - Toxicity to various agents [Unknown]
  - Musculoskeletal stiffness [Not Recovered/Not Resolved]
  - Eye pain [Unknown]
  - Limb injury [Unknown]
  - Off label use [Unknown]

NARRATIVE: CASE EVENT DATE: 20030101
